FAERS Safety Report 17361265 (Version 1)
Quarter: 2020Q1

REPORT INFORMATION
  Report Type: Spontaneous
  Country: US (occurrence: US)
  Receive Date: 20200203
  Receipt Date: 20200203
  Transmission Date: 20200409
  Serious: No
  Sender: FDA-Public Use
  Company Number: US-GE HEALTHCARE LIFE SCIENCES-2019CSU006574

PATIENT
  Sex: Female

DRUGS (10)
  1. VISIPAQUE [Suspect]
     Active Substance: IODIXANOL
     Indication: COMPUTERISED TOMOGRAM ABDOMEN
     Dosage: 100 ML, UNK
     Route: 042
     Dates: start: 20191220, end: 20191220
  2. VISIPAQUE [Suspect]
     Active Substance: IODIXANOL
     Indication: COMPUTERISED TOMOGRAM PELVIS
  3. VITAMIN D [Concomitant]
     Active Substance: VITAMIN D NOS
     Route: 065
  4. CYTOMEL [Concomitant]
     Active Substance: LIOTHYRONINE SODIUM
     Route: 065
  5. SYNTHROID [Concomitant]
     Active Substance: LEVOTHYROXINE SODIUM
     Dosage: UNK
     Route: 065
  6. LORATADINE. [Concomitant]
     Active Substance: LORATADINE
     Dosage: UNK
     Route: 065
  7. VITAMINS [Concomitant]
     Active Substance: VITAMINS
     Dosage: UNK
     Route: 065
  8. ZYRTEC [Concomitant]
     Active Substance: CETIRIZINE HYDROCHLORIDE
     Dosage: UNK
     Route: 065
  9. VISIPAQUE [Suspect]
     Active Substance: IODIXANOL
     Indication: LYMPHADENECTOMY
  10. SOLU-MEDROL [Concomitant]
     Active Substance: METHYLPREDNISOLONE SODIUM SUCCINATE
     Dosage: UNK
     Route: 065
     Dates: start: 20191220

REACTIONS (2)
  - Paraesthesia oral [Recovered/Resolved]
  - Tongue pruritus [Recovered/Resolved]

NARRATIVE: CASE EVENT DATE: 20191220
